FAERS Safety Report 4819877-0 (Version None)
Quarter: 2005Q4

REPORT INFORMATION
  Report Type: 
  Country: None (occurrence: None)
  Receive Date: 20051103
  Receipt Date: 20050705
  Transmission Date: 20060501
  Serious: Yes (Hospitalization, Disabling)
  Sender: FDA-Public Use
  Company Number: US-MERCK-0507USA00610

PATIENT
  Age: 48 Year
  Sex: Female
  Weight: 68 kg

DRUGS (19)
  1. VIOXX [Suspect]
     Indication: ARTHRITIS
     Route: 048
     Dates: start: 20020201, end: 20030203
  2. AGGRENOX [Concomitant]
     Route: 065
     Dates: start: 20020103
  3. FOLIC ACID [Concomitant]
     Route: 065
  4. NICOTINE [Concomitant]
     Route: 065
  5. ZYBAN [Concomitant]
     Indication: DEPRESSION
     Route: 065
  6. VITAMIN E [Concomitant]
     Route: 065
  7. TYLENOL (CAPLET) [Concomitant]
     Indication: BACK PAIN
     Route: 065
     Dates: start: 19950701
  8. ZOCOR [Concomitant]
     Indication: BLOOD CHOLESTEROL INCREASED
     Route: 065
     Dates: start: 20011201
  9. PLAVIX [Concomitant]
     Indication: MYOCARDIAL INFARCTION
     Route: 065
     Dates: start: 20011201
  10. VASOTEC [Concomitant]
     Route: 065
  11. NEURONTIN [Concomitant]
     Route: 065
  12. DURAGESIC-100 [Concomitant]
     Route: 065
  13. PENLAC [Concomitant]
     Route: 065
  14. SYNTHROID [Concomitant]
     Route: 065
  15. LORAZEPAM [Concomitant]
     Route: 065
  16. ASPIRIN [Concomitant]
     Route: 065
     Dates: start: 20011201
  17. EFFEXOR [Concomitant]
     Route: 065
  18. ACETAMINOPHEN AND CODEINE [Concomitant]
     Route: 065
     Dates: start: 20020109
  19. VALIUM [Concomitant]
     Route: 065
     Dates: start: 20020201

REACTIONS (9)
  - ANGINA PECTORIS [None]
  - CARDIAC DISORDER [None]
  - CORONARY ARTERY DISEASE [None]
  - HALLUCINATION, AUDITORY [None]
  - HYPERTENSION [None]
  - HYPOTHYROIDISM [None]
  - MENTAL DISORDER [None]
  - MYOCARDIAL INFARCTION [None]
  - VOMITING [None]
